FAERS Safety Report 14698804 (Version 2)
Quarter: 2018Q2

REPORT INFORMATION
  Report Type: Report from Study
  Country: US (occurrence: US)
  Receive Date: 20180330
  Receipt Date: 20180408
  Transmission Date: 20180711
  Serious: Yes (Hospitalization, Other)
  Sender: FDA-Public Use
  Company Number: US-TESARO, INC-US-2018TSO01392

PATIENT

DRUGS (3)
  1. ZEJULA [Suspect]
     Active Substance: NIRAPARIB
     Indication: OVARIAN CANCER
     Dosage: 200 MG, QD
     Route: 048
     Dates: start: 20170913
  2. ZEJULA [Suspect]
     Active Substance: NIRAPARIB
     Dosage: 200 MG, QD
     Route: 048
     Dates: end: 20180402
  3. ZEJULA [Suspect]
     Active Substance: NIRAPARIB
     Dosage: 200 MG, QD
     Route: 048
     Dates: start: 20180113

REACTIONS (25)
  - Cough [Unknown]
  - Blood urea increased [Unknown]
  - Fatigue [Unknown]
  - Body temperature increased [Unknown]
  - Monocyte count increased [Unknown]
  - Neutropenia [Unknown]
  - Red blood cell count decreased [Unknown]
  - Pulmonary embolism [Unknown]
  - Mean cell haemoglobin increased [Unknown]
  - Paratracheal lymphadenopathy [Unknown]
  - Asthenia [Not Recovered/Not Resolved]
  - Dyspnoea [Not Recovered/Not Resolved]
  - Upper respiratory tract infection [Unknown]
  - Mean platelet volume decreased [Unknown]
  - Thrombocytopenia [Unknown]
  - Carbohydrate antigen 125 increased [Unknown]
  - Pneumonia [Unknown]
  - Blood sodium decreased [Unknown]
  - Blood potassium increased [Unknown]
  - Tachycardia [Unknown]
  - Alanine aminotransferase increased [Unknown]
  - Haematocrit decreased [Unknown]
  - Deep vein thrombosis [Unknown]
  - Haemoglobin decreased [Unknown]
  - Aspartate aminotransferase increased [Unknown]

NARRATIVE: CASE EVENT DATE: 20180316
